FAERS Safety Report 10815044 (Version 3)
Quarter: 2015Q3

REPORT INFORMATION
  Report Type: Spontaneous
  Country: KZ (occurrence: KZ)
  Receive Date: 20150218
  Receipt Date: 20150715
  Transmission Date: 20151125
  Serious: Yes (Death)
  Sender: FDA-Public Use
  Company Number: KZ-ALKERMES INC.-ALK-2015-004213

PATIENT

DRUGS (6)
  1. GRANDAXIN [Concomitant]
     Active Substance: TOFISOPAM
     Indication: DEPRESSION
     Dosage: UNK
     Route: 048
     Dates: start: 20100525, end: 20100625
  2. HEPADIF [Concomitant]
     Indication: LIVER OPERATION
     Dosage: UNK
     Route: 048
     Dates: start: 20100520, end: 20100825
  3. AMITRIPTYLINE [Concomitant]
     Active Substance: AMITRIPTYLINE
     Indication: DEPRESSION
     Dosage: UNK
     Route: 048
     Dates: start: 20100625, end: 20100825
  4. VIVITROL [Suspect]
     Active Substance: NALTREXONE
     Indication: ALCOHOLISM
     Dosage: 380 MG, QMO
     Route: 030
     Dates: start: 20100525, end: 20100825
  5. FEZAM [Concomitant]
     Indication: PRODUCT USED FOR UNKNOWN INDICATION
     Dosage: UNK
     Route: 048
     Dates: start: 20100525, end: 20100825
  6. BENEVRAN [Concomitant]
     Indication: GASTRIC ULCER
     Dosage: UNK
     Route: 048
     Dates: start: 20100525, end: 20100825

REACTIONS (8)
  - Death [Fatal]
  - Alcohol use [Unknown]
  - Hepatic pain [Recovered/Resolved]
  - Decreased appetite [Recovered/Resolved]
  - Abdominal discomfort [Recovered/Resolved]
  - Depressed mood [Recovered/Resolved]
  - Depressive symptom [Recovered/Resolved]
  - Weight decreased [Recovered/Resolved]

NARRATIVE: CASE EVENT DATE: 201009
